FAERS Safety Report 12550543 (Version 3)
Quarter: 2016Q3

REPORT INFORMATION
  Report Type: Spontaneous
  Country: AT (occurrence: AT)
  Receive Date: 20160712
  Receipt Date: 20160802
  Transmission Date: 20161109
  Serious: Yes (Other)
  Sender: FDA-Public Use
  Company Number: AT-ALLERGAN-1662496US

PATIENT
  Age: 48 Year
  Sex: Female

DRUGS (4)
  1. ESMYA [Suspect]
     Active Substance: ULIPRISTAL ACETATE
     Dosage: 5 MG, QD
     Route: 048
     Dates: start: 201503, end: 201505
  2. DEXIBUPROFEN [Concomitant]
     Active Substance: DEXIBUPROFEN
     Indication: DYSMENORRHOEA
     Dosage: 400 MG, PRN
  3. ESMYA [Suspect]
     Active Substance: ULIPRISTAL ACETATE
     Indication: ENDOMETRIOSIS
     Dosage: 5 MG, QD
     Route: 048
     Dates: start: 201601, end: 20160415
  4. ESMYA [Suspect]
     Active Substance: ULIPRISTAL ACETATE
     Indication: UTERINE LEIOMYOMA
     Dosage: 5 MG, QD
     Route: 048
     Dates: start: 201508, end: 20151108

REACTIONS (7)
  - Carbohydrate antigen 125 increased [Recovered/Resolved]
  - Drug administration error [Unknown]
  - Amenorrhoea [Recovered/Resolved]
  - Carbohydrate antigen 19-9 increased [Recovering/Resolving]
  - Off label use [Unknown]
  - Therapeutic response unexpected [Unknown]
  - Ovarian cyst [Unknown]

NARRATIVE: CASE EVENT DATE: 20160304
